FAERS Safety Report 6406229-5 (Version None)
Quarter: 2009Q4

REPORT INFORMATION
  Report Type: 
  Country: None (occurrence: None)
  Receive Date: 20091019
  Receipt Date: 20091005
  Transmission Date: 20100525
  Serious: Yes (Other)
  Sender: FDA-Public Use
  Company Number: PHHY2009JP36932

PATIENT
  Sex: Male
  Weight: 67 kg

DRUGS (5)
  1. ZOMETA [Suspect]
     Indication: METASTASES TO BONE
     Dosage: 4 MG, QD
     Route: 042
     Dates: start: 20090819, end: 20090819
  2. ZOMETA [Suspect]
     Indication: BONE LESION
     Dosage: 4 MG, QD
     Route: 042
     Dates: start: 20090916, end: 20090916
  3. ODYNE [Concomitant]
     Indication: PROSTATE CANCER
     Dosage: 375 MG, UNK
     Route: 048
     Dates: start: 20090722
  4. CALONAL [Concomitant]
     Indication: MUSCULOSKELETAL STIFFNESS
     Dosage: 1200 MG, UNK
     Route: 048
     Dates: start: 20090624
  5. AMLODIPINE [Concomitant]
     Indication: HYPERTENSION
     Dosage: 2.5 MG, UNK
     Route: 048
     Dates: start: 20090624

REACTIONS (5)
  - ASTHENIA [None]
  - HYPOAESTHESIA [None]
  - HYPOCALCAEMIA [None]
  - PROSTATIC SPECIFIC ANTIGEN INCREASED [None]
  - TETANY [None]
